FAERS Safety Report 13764759 (Version 1)
Quarter: 2017Q3

REPORT INFORMATION
  Report Type: Spontaneous
  Country: CO (occurrence: CO)
  Receive Date: 20170718
  Receipt Date: 20170718
  Transmission Date: 20171127
  Serious: Yes (Death, Hospitalization)
  Sender: FDA-Public Use
  Company Number: CO-PFIZER INC-2017288205

PATIENT
  Age: 42 Year
  Sex: Male

DRUGS (3)
  1. PHENYTOIN SODIUM. [Suspect]
     Active Substance: PHENYTOIN SODIUM
     Indication: CONVULSION PROPHYLAXIS
     Dosage: 300 MG, DAILY
     Route: 048
  2. VALPROIC ACID /00228502/ [Suspect]
     Active Substance: VALPROATE SODIUM
     Dosage: 1 G, 1X/DAY
  3. PHENYTOIN SODIUM. [Suspect]
     Active Substance: PHENYTOIN SODIUM
     Indication: CONVULSION PROPHYLAXIS
     Dosage: 250 MG, EVERY 24 HOURS
     Route: 042

REACTIONS (2)
  - Drug reaction with eosinophilia and systemic symptoms [Unknown]
  - Acute hepatic failure [Fatal]
